APPROVED DRUG PRODUCT: MUCINEX DM
Active Ingredient: DEXTROMETHORPHAN HYDROBROMIDE; GUAIFENESIN
Strength: 60MG;1.2GM
Dosage Form/Route: TABLET, EXTENDED RELEASE;ORAL
Application: N021620 | Product #001
Applicant: RB HEALTH US LLC
Approved: Apr 29, 2004 | RLD: Yes | RS: Yes | Type: OTC